FAERS Safety Report 6430219-X (Version None)
Quarter: 2009Q4

REPORT INFORMATION
  Report Type: 
  Country: None (occurrence: None)
  Receive Date: 20091106
  Receipt Date: 20091013
  Transmission Date: 20100525
  Serious: No
  Sender: FDA-Public Use
  Company Number: US-ROCHE-662329

PATIENT
  Age: 17 Year
  Sex: Male

DRUGS (2)
  1. TAMIFLU [Suspect]
     Route: 065
  2. TAMIFLU [Suspect]
     Dosage: MEDICATION ERROR, RECEIVED 2 CAPSULES AT THE SAME TIME
     Route: 065

REACTIONS (3)
  - INCORRECT DOSE ADMINISTERED [None]
  - NO ADVERSE EVENT [None]
  - PYREXIA [None]
